FAERS Safety Report 8317379 (Version 2)
Quarter: 2015Q1

REPORT INFORMATION
  Report Type: Spontaneous
  Country: US (occurrence: US)
  Receive Date: 20111230
  Receipt Date: 20150331
  Transmission Date: 20150721
  Serious: Yes (Congenital Anomaly, Other)
  Sender: FDA-Public Use
  Company Number: US-ELI_LILLY_AND_COMPANY-US201112006898

PATIENT
  Sex: Female

DRUGS (7)
  1. PRENATAL VITAMINS                  /08195401/ [Concomitant]
     Route: 064
  2. NEXIUM [Concomitant]
     Active Substance: ESOMEPRAZOLE MAGNESIUM
  3. ADVAIR HFA [Concomitant]
     Active Substance: FLUTICASONE PROPIONATE\SALMETEROL XINAFOATE
     Route: 064
  4. PROZAC [Suspect]
     Active Substance: FLUOXETINE HYDROCHLORIDE
     Indication: PRODUCT USED FOR UNKNOWN INDICATION
     Dosage: 40 MG, QD
     Route: 064
     Dates: start: 1999
  5. NASONEX [Concomitant]
     Active Substance: MOMETASONE FUROATE
  6. LORATADINE. [Concomitant]
     Active Substance: LORATADINE
  7. SINGULAIR [Concomitant]
     Active Substance: MONTELUKAST SODIUM

REACTIONS (7)
  - Attention deficit/hyperactivity disorder [Unknown]
  - Foetal exposure during pregnancy [Recovered/Resolved]
  - Oppositional defiant disorder [Unknown]
  - Deafness [Unknown]
  - Obsessive-compulsive disorder [Unknown]
  - Autism spectrum disorder [Unknown]
  - Cardiac murmur [Unknown]
